FAERS Safety Report 4878141-4 (Version None)
Quarter: 2005Q4

REPORT INFORMATION
  Report Type: 
  Country: None (occurrence: None)
  Receive Date: 20051212
  Receipt Date: 20050909
  Transmission Date: 20060501
  Serious: No
  Sender: FDA-Public Use
  Company Number: 2005-00987

PATIENT
  Age: 61 Year
  Sex: Male
  Weight: 92.1 kg

DRUGS (20)
  1. VELCADE [Suspect]
     Indication: MULTIPLE MYELOMA
     Dosage: 2.60 MG, IV BOLUS
     Route: 040
     Dates: start: 20050321, end: 20050421
  2. VELCADE [Suspect]
     Indication: MULTIPLE MYELOMA
     Dosage: 2.60 MG, IV BOLUS
     Route: 040
     Dates: start: 20050502
  3. VELCADE [Suspect]
     Indication: MULTIPLE MYELOMA
     Dosage: 2.60 MG, IV BOLUS
     Route: 040
     Dates: start: 20050509
  4. MULTIVITAMIN (VITAMIN NOS) [Concomitant]
  5. USANA [Concomitant]
  6. ANTIOXIDANTS [Concomitant]
  7. ESSENTIALS (VITAMINS NOS) [Concomitant]
  8. COENZYME Q10 [Concomitant]
  9. BIOMEGA [Concomitant]
  10. PROFLAVONE [Concomitant]
  11. POLY-C [Concomitant]
  12. PROCOSA [Concomitant]
  13. PALMETTO PLUS [Concomitant]
  14. GARLIC (GARLIC) [Concomitant]
  15. TRAMMEL [Concomitant]
  16. ACIDOPHILUS (LACTOBACILLUS ACIDOPHILUS) [Concomitant]
  17. EURIXOR (VISCUM ALBUM EXTRACT) [Concomitant]
  18. MISTLETOE [Concomitant]
  19. CALCIUM WITH VITAMIN D (ERGOCALCIFEROL, CALCIUM SODIUM LACTATE, CALCIU [Concomitant]
  20. CIPROFLOXACIN [Concomitant]

REACTIONS (4)
  - HERPES ZOSTER [None]
  - MUSCULOSKELETAL DISCOMFORT [None]
  - NEURALGIA [None]
  - RASH [None]
